FAERS Safety Report 9557441 (Version 1)
Quarter: 2013Q3

REPORT INFORMATION
  Report Type: Spontaneous
  Country: US (occurrence: None)
  Receive Date: 20130726
  Receipt Date: 20130726
  Transmission Date: 20140515
  Serious: Yes (Hospitalization)
  Sender: FDA-Public Use
  Company Number: UTC-019722

PATIENT
  Age: 30 Year
  Sex: Female
  Weight: 55.45 kg

DRUGS (5)
  1. REMODULIN (1 MILLIGRAM/ MILLILITERS, INJECTION FOR INFUSION) (TREPROSTINIL SODIUM) [Suspect]
     Indication: PULMONARY HYPERTENSION
     Dosage: (0.003125 UG/KG, 1 IN 1 MIN)
     Route: 042
     Dates: start: 20120314
  2. REVATIO (SILDENAFIL CITRATE) [Concomitant]
  3. ASPIRIN (ACETYLSALICYLIC ACID) [Concomitant]
  4. TRACLEER (BOSENTAN) [Concomitant]
  5. DIURETICS (DIURETICS) [Concomitant]

REACTIONS (1)
  - Headache [None]
